FAERS Safety Report 13663945 (Version 1)
Quarter: 2017Q2

REPORT INFORMATION
  Report Type: Spontaneous
  Country: US (occurrence: US)
  Receive Date: 20170618
  Receipt Date: 20170618
  Transmission Date: 20170830
  Serious: Yes (Hospitalization, Other)
  Sender: FDA-Public Use
  Company Number: None

PATIENT
  Age: 43 Year
  Sex: Female
  Weight: 73.35 kg

DRUGS (1)
  1. SEROQUEL [Suspect]
     Active Substance: QUETIAPINE FUMARATE
     Indication: BIPOLAR DISORDER
     Dosage: AT BEDTIME ORAL
     Route: 048

REACTIONS (4)
  - Gallbladder disorder [None]
  - Abdominal pain upper [None]
  - Vomiting [None]
  - Cholelithiasis [None]

NARRATIVE: CASE EVENT DATE: 20170612
